FAERS Safety Report 7308880-7 (Version None)
Quarter: 2011Q1

REPORT INFORMATION
  Report Type: 
  Country: None (occurrence: None)
  Receive Date: 20110223
  Receipt Date: 20100409
  Transmission Date: 20110831
  Serious: No
  Sender: FDA-Public Use
  Company Number: US-NOVOPROD-306923

PATIENT
  Age: 8 Year
  Sex: Male

DRUGS (1)
  1. NOVOSEVEN RT [Suspect]
     Indication: HAEMOPHILIA
     Dosage: 90 UG/KG, UNK
     Route: 042

REACTIONS (1)
  - DRUG INEFFECTIVE [None]
